FAERS Safety Report 9851807 (Version 1)
Quarter: 2014Q1

REPORT INFORMATION
  Report Type: Spontaneous
  Country: US (occurrence: None)
  Receive Date: 20140127
  Receipt Date: 20140127
  Transmission Date: 20141002
  Serious: Yes (Disabling)
  Sender: FDA-Public Use
  Company Number: VAL_02900_2014

PATIENT
  Age: 55 Year
  Sex: Female

DRUGS (3)
  1. BENAZEPRIL [Suspect]
     Indication: PRODUCT USED FOR UNKNOWN INDICATION
     Dosage: (DF)
  2. EXFORGE [Suspect]
     Indication: HYPERTENSION
     Dates: start: 200711
  3. DIOVAN (UNKNOWN) [Concomitant]

REACTIONS (3)
  - Oedema peripheral [None]
  - Cough [None]
  - Pain in extremity [None]
